FAERS Safety Report 14403076 (Version 1)
Quarter: 2018Q1

REPORT INFORMATION
  Report Type: Spontaneous
  Country: US (occurrence: US)
  Receive Date: 20180117
  Receipt Date: 20180117
  Transmission Date: 20180509
  Serious: Yes (Death, Disabling)
  Sender: FDA-Public Use
  Company Number: None

PATIENT
  Age: 100 Year
  Sex: Male
  Weight: 56.7 kg

DRUGS (1)
  1. CIPRO [Suspect]
     Active Substance: CIPROFLOXACIN HYDROCHLORIDE
     Indication: URINARY TRACT INFECTION
     Dosage: 500MG 2X PER DAY 5 DAYS
     Dates: start: 20170215

REACTIONS (4)
  - Decubitus ulcer [None]
  - Impaired healing [None]
  - Tendon rupture [None]
  - Gait inability [None]

NARRATIVE: CASE EVENT DATE: 20170215
